FAERS Safety Report 15053177 (Version 16)
Quarter: 2020Q3

REPORT INFORMATION
  Report Type: Report from Study
  Country: US (occurrence: US)
  Receive Date: 20180622
  Receipt Date: 20200716
  Transmission Date: 20201102
  Serious: Yes (Hospitalization)
  Sender: FDA-Public Use
  Company Number: US-ACTELION-A-NJ2017-155211

PATIENT
  Age: 67 Year
  Sex: Female
  Weight: 68.03 kg

DRUGS (6)
  1. VELETRI [Suspect]
     Active Substance: EPOPROSTENOL
     Dosage: UNK
     Route: 042
  2. VELETRI [Suspect]
     Active Substance: EPOPROSTENOL
     Dosage: 18 NG/KG, PER MIN
     Route: 042
  3. VELETRI [Suspect]
     Active Substance: EPOPROSTENOL
     Dosage: 18 NG/KG, PER MIN
     Route: 042
  4. VELETRI [Suspect]
     Active Substance: EPOPROSTENOL
     Dosage: UNK
     Route: 042
  5. VELETRI [Suspect]
     Active Substance: EPOPROSTENOL
     Indication: PULMONARY ARTERIAL HYPERTENSION
     Dosage: 18 NG/KG, PER MIN
     Route: 042
  6. SILDENAFIL. [Concomitant]
     Active Substance: SILDENAFIL
     Indication: PULMONARY ARTERIAL HYPERTENSION

REACTIONS (19)
  - Anaemia [Unknown]
  - Blood potassium decreased [Unknown]
  - Rash [Not Recovered/Not Resolved]
  - Gastrointestinal ulcer haemorrhage [Unknown]
  - Dyspnoea exertional [Unknown]
  - Diarrhoea [Not Recovered/Not Resolved]
  - Gastrointestinal disorder [Unknown]
  - Lip swelling [Unknown]
  - Cheilitis [Unknown]
  - Arthralgia [Unknown]
  - Hospitalisation [Unknown]
  - Laryngitis [Unknown]
  - Fall [Unknown]
  - Ligament sprain [Unknown]
  - Haematochezia [Unknown]
  - Unevaluable event [Unknown]
  - Rash macular [Unknown]
  - Rash erythematous [Unknown]
  - Device dislocation [Unknown]

NARRATIVE: CASE EVENT DATE: 201706
